FAERS Safety Report 12984000 (Version 2)
Quarter: 2017Q1

REPORT INFORMATION
  Report Type: Spontaneous
  Country: US (occurrence: US)
  Receive Date: 20161129
  Receipt Date: 20170112
  Transmission Date: 20170428
  Serious: No
  Sender: FDA-Public Use
  Company Number: US-PFIZER INC-2016421514

PATIENT
  Age: 83 Year

DRUGS (2)
  1. DEXTROSE. [Suspect]
     Active Substance: DEXTROSE
     Dosage: UNK, [DEXTROSE (82.5 MG/ML)]/ [2 ML AMPULE]
  2. MARCAINE [Suspect]
     Active Substance: BUPIVACAINE HYDROCHLORIDE
     Indication: SPINAL ANAESTHESIA
     Dosage: UNK, [POTENCY: 7.5 MG IN 1 ML]/ [PACKAGED: AMPULE 2 ML]

REACTIONS (1)
  - Drug ineffective [Unknown]
